FAERS Safety Report 13162727 (Version 1)
Quarter: 2017Q1

REPORT INFORMATION
  Report Type: Spontaneous
  Country: US (occurrence: US)
  Receive Date: 20170127
  Receipt Date: 20170127
  Transmission Date: 20170428
  Serious: No
  Sender: FDA-Public Use
  Company Number: None

PATIENT
  Age: 39 Year
  Sex: Male
  Weight: 90 kg

DRUGS (1)
  1. PROHANCE [Suspect]
     Active Substance: GADOTERIDOL
     Indication: NUCLEAR MAGNETIC RESONANCE IMAGING BRAIN
     Dosage: OTHER FREQUENCY:1 SINGLE DOSE;?
     Route: 042
     Dates: start: 20170127, end: 20170127

REACTIONS (4)
  - Nasal pruritus [None]
  - Head discomfort [None]
  - Hypersensitivity [None]
  - Sneezing [None]

NARRATIVE: CASE EVENT DATE: 20170127
